FAERS Safety Report 6308273-5 (Version None)
Quarter: 2009Q3

REPORT INFORMATION
  Report Type: 
  Country: None (occurrence: None)
  Receive Date: 20090813
  Receipt Date: 20090806
  Transmission Date: 20100115
  Serious: Yes (Other)
  Sender: FDA-Public Use
  Company Number: CA-ABBOTT-09P-028-0590837-00

PATIENT

DRUGS (2)
  1. WARFARIN SODIUM [Suspect]
     Indication: HEART VALVE REPLACEMENT
     Dosage: NOT REPORTED
  2. HEPARIN [Suspect]
     Indication: HEART VALVE REPLACEMENT
     Dosage: INFUSION

REACTIONS (1)
  - HAEMORRHAGE INTRACRANIAL [None]
